FAERS Safety Report 24463569 (Version 1)
Quarter: 2024Q4

REPORT INFORMATION
  Report Type: Report from Study
  Country: US (occurrence: US)
  Receive Date: 20241018
  Receipt Date: 20241018
  Transmission Date: 20250114
  Serious: No
  Sender: ROCHE
  Company Number: US-ROCHE-3305978

PATIENT
  Age: 81 Year
  Sex: Female
  Weight: 131.54 kg

DRUGS (25)
  1. XOLAIR [Suspect]
     Active Substance: OMALIZUMAB
     Indication: Idiopathic urticaria
     Dosage: RECEIVED 2 INJECTIONS
     Route: 058
     Dates: start: 201507
  2. XOLAIR [Suspect]
     Active Substance: OMALIZUMAB
     Dosage: RECEIVES 2 INJECTIONS ;ONGOING: YES
     Route: 058
     Dates: start: 202301
  3. XOLAIR [Suspect]
     Active Substance: OMALIZUMAB
     Route: 058
     Dates: start: 20220817, end: 20230523
  4. XOLAIR [Suspect]
     Active Substance: OMALIZUMAB
     Route: 058
     Dates: start: 20220907, end: 20230523
  5. XOLAIR [Suspect]
     Active Substance: OMALIZUMAB
     Route: 058
     Dates: start: 20220928, end: 20230523
  6. XOLAIR [Suspect]
     Active Substance: OMALIZUMAB
     Route: 058
     Dates: start: 20230329, end: 20230523
  7. XOLAIR [Suspect]
     Active Substance: OMALIZUMAB
     Route: 058
     Dates: start: 20230621
  8. XOLAIR [Suspect]
     Active Substance: OMALIZUMAB
     Route: 058
     Dates: start: 20230719
  9. XOLAIR [Suspect]
     Active Substance: OMALIZUMAB
     Route: 058
  10. XOLAIR [Suspect]
     Active Substance: OMALIZUMAB
     Indication: Idiopathic urticaria
     Route: 058
     Dates: start: 20230719
  11. XOLAIR [Suspect]
     Active Substance: OMALIZUMAB
     Dosage: INJECT 2 ML INTO SKIN
     Route: 058
     Dates: start: 20220823, end: 20230523
  12. XOLAIR [Suspect]
     Active Substance: OMALIZUMAB
     Route: 058
  13. BENADRYL [Concomitant]
     Active Substance: DIPHENHYDRAMINE HYDROCHLORIDE
  14. GARLIQUE [Concomitant]
     Active Substance: GARLIC
  15. PROMETHAZINE [Concomitant]
     Active Substance: PROMETHAZINE HYDROCHLORIDE
  16. PREVIDENT [Concomitant]
     Active Substance: SODIUM FLUORIDE
  17. EPIPEN [Concomitant]
     Active Substance: EPINEPHRINE
  18. CINNAMON [Concomitant]
     Active Substance: CINNAMON
  19. ALFALFA [Concomitant]
     Active Substance: ALFALFA
  20. CHOLINE DIHYDROGEN CITRATE [Concomitant]
  21. CINNAMON\HERBALS [Concomitant]
     Active Substance: CINNAMON\HERBALS
  22. POTASSIUM [Concomitant]
     Active Substance: POTASSIUM
  23. PROMETHAZINE [Concomitant]
     Active Substance: PROMETHAZINE HYDROCHLORIDE
  24. PREVIDENT 5000 SENSITIVE [Concomitant]
     Active Substance: POTASSIUM NITRATE\SODIUM FLUORIDE
  25. VITAMIN B COMPLEX [Concomitant]
     Active Substance: CYANOCOBALAMIN\DEXPANTHENOL\NIACINAMIDE\PYRIDOXINE HYDROCHLORIDE\RIBOFLAVIN 5^-PHOSPHATE SODIUM\THIA

REACTIONS (5)
  - Off label use [Unknown]
  - Gait disturbance [Not Recovered/Not Resolved]
  - C-reactive protein increased [Unknown]
  - Finger deformity [Not Recovered/Not Resolved]
  - Blood pressure abnormal [Unknown]

NARRATIVE: CASE EVENT DATE: 20150701
